FAERS Safety Report 6987068-3 (Version None)
Quarter: 2010Q3

REPORT INFORMATION
  Report Type: 
  Country: None (occurrence: None)
  Receive Date: 20100916
  Receipt Date: 20100902
  Transmission Date: 20110219
  Serious: Yes (Hospitalization, Other)
  Sender: FDA-Public Use
  Company Number: US-ELI_LILLY_AND_COMPANY-US201007001788

PATIENT
  Sex: Female
  Weight: 62.585 kg

DRUGS (5)
  1. FORTEO [Suspect]
     Indication: OSTEOPOROSIS
     Dosage: 20 UG, DAILY (1/D)
     Dates: start: 20100420
  2. EVISTA [Concomitant]
  3. PROSCAR [Concomitant]
  4. MULTI-VITAMIN [Concomitant]
  5. CALCIUM W/VITAMIN D NOS [Concomitant]

REACTIONS (4)
  - CEREBRAL HAEMORRHAGE [None]
  - CONCUSSION [None]
  - FALL [None]
  - HEAD INJURY [None]
